FAERS Safety Report 6991646-5 (Version None)
Quarter: 2010Q3

REPORT INFORMATION
  Report Type: 
  Country: None (occurrence: None)
  Receive Date: 20100917
  Receipt Date: 20100903
  Transmission Date: 20110219
  Serious: No
  Sender: FDA-Public Use
  Company Number: US-CELGENEUS-163-21880-10081846

PATIENT
  Sex: Female
  Weight: 50.394 kg

DRUGS (4)
  1. REVLIMID [Suspect]
     Indication: MULTIPLE MYELOMA
     Route: 048
     Dates: start: 20080130
  2. REVLIMID [Suspect]
     Route: 048
     Dates: start: 20080201
  3. REVLIMID [Suspect]
     Route: 048
     Dates: start: 20100801
  4. REVLIMID [Suspect]
     Route: 048
     Dates: start: 20100819

REACTIONS (1)
  - TUMOUR MARKER INCREASED [None]
